FAERS Safety Report 8507231-X (Version None)
Quarter: 2012Q3

REPORT INFORMATION
  Report Type: 
  Country: None (occurrence: None)
  Receive Date: 20120712
  Receipt Date: 20120702
  Transmission Date: 20120928
  Serious: Yes (Other)
  Sender: FDA-Public Use
  Company Number: US-BAYER-2012-067708

PATIENT

DRUGS (2)
  1. ALKA-SELTZER PLUS DAY SEVERE COLD, COUGH + FLU [Suspect]
     Dosage: BOTTLE COUNT: NOT REPORTED
  2. DAYQUIL [Concomitant]

REACTIONS (1)
  - DELIRIUM [None]
